FAERS Safety Report 25363940 (Version 5)
Quarter: 2025Q4

REPORT INFORMATION
  Report Type: Report from Study
  Country: US (occurrence: US)
  Receive Date: 20250527
  Receipt Date: 20251223
  Transmission Date: 20260118
  Serious: Yes (Other)
  Sender: NOVARTIS
  Company Number: US-002147023-NVSC2025US084559

PATIENT
  Sex: Female

DRUGS (1)
  1. KESIMPTA [Suspect]
     Active Substance: OFATUMUMAB
     Indication: Product used for unknown indication
     Dosage: UNK, QMO
     Route: 065

REACTIONS (4)
  - Multiple sclerosis [Unknown]
  - Memory impairment [Unknown]
  - Product supply issue [Unknown]
  - Drug ineffective [Not Recovered/Not Resolved]
